FAERS Safety Report 15075053 (Version 1)
Quarter: 2018Q2

REPORT INFORMATION
  Report Type: Spontaneous
  Country: US (occurrence: US)
  Receive Date: 20180627
  Receipt Date: 20180627
  Transmission Date: 20180711
  Serious: No
  Sender: FDA-Public Use
  Company Number: US-SAOL THERAPEUTICS-2017SAO01490

PATIENT
  Sex: Male
  Weight: 113.24 kg

DRUGS (22)
  1. CELEBREX [Concomitant]
     Active Substance: CELECOXIB
  2. BACLOFEN. [Suspect]
     Active Substance: BACLOFEN
     Indication: MUSCLE SPASTICITY
     Dosage: 110.8 ?G, \DAY
     Route: 037
  3. MORPHINE [Suspect]
     Active Substance: MORPHINE
     Dosage: UNK
     Route: 037
  4. TAMSULOSIN [Concomitant]
     Active Substance: TAMSULOSIN
  5. BUSPIRONE [Concomitant]
     Active Substance: BUSPIRONE HYDROCHLORIDE
  6. BACLOFEN. [Suspect]
     Active Substance: BACLOFEN
     Dosage: 214.90 ?G, \DAY
     Route: 037
     Dates: start: 2007
  7. OXYBUTYNIN. [Concomitant]
     Active Substance: OXYBUTYNIN CHLORIDE
  8. GABAPENTIN. [Concomitant]
     Active Substance: GABAPENTIN
  9. TIZANIDINE. [Concomitant]
     Active Substance: TIZANIDINE
  10. BACLOFEN. [Suspect]
     Active Substance: BACLOFEN
     Indication: MUSCLE SPASTICITY
     Dosage: UNK
     Route: 037
  11. MORPHINE [Suspect]
     Active Substance: MORPHINE
     Dosage: 0.537 MG, \DAY
     Route: 037
  12. MORPHINE [Suspect]
     Active Substance: MORPHINE
     Dosage: 0.562 MG, \DAY
     Route: 037
  13. ACYCLOVIR. [Concomitant]
     Active Substance: ACYCLOVIR
  14. GEMFIBROZIL. [Concomitant]
     Active Substance: GEMFIBROZIL
  15. PROMETHAZINE [Concomitant]
     Active Substance: PROMETHAZINE\PROMETHAZINE HYDROCHLORIDE
  16. BACLOFEN. [Suspect]
     Active Substance: BACLOFEN
     Indication: SPINAL CORD INJURY
  17. OMEPRAZOLE. [Concomitant]
     Active Substance: OMEPRAZOLE
  18. BACLOFEN. [Suspect]
     Active Substance: BACLOFEN
     Indication: SPINAL CORD INJURY
  19. BACLOFEN. [Suspect]
     Active Substance: BACLOFEN
     Dosage: 224.90 ?G, \DAY
     Route: 037
     Dates: start: 2007
  20. PRAVASTATIN. [Concomitant]
     Active Substance: PRAVASTATIN
  21. POLYETHYLENE GLYCOL [Concomitant]
     Active Substance: POLYETHYLENE GLYCOLS
  22. FUROSEMIDE. [Concomitant]
     Active Substance: FUROSEMIDE

REACTIONS (5)
  - Muscle spasms [Not Recovered/Not Resolved]
  - Arthropathy [Unknown]
  - Muscle spasticity [Not Recovered/Not Resolved]
  - Pain [Not Recovered/Not Resolved]
  - Device failure [Unknown]

NARRATIVE: CASE EVENT DATE: 2017
